FAERS Safety Report 6187832-7 (Version None)
Quarter: 2009Q2

REPORT INFORMATION
  Report Type: 
  Country: None (occurrence: None)
  Receive Date: 20090511
  Receipt Date: 20090511
  Transmission Date: 20091009
  Serious: No
  Sender: FDA-Public Use
  Company Number: None

PATIENT

DRUGS (1)
  1. ABILIFY [Suspect]
     Dosage: 10 MG DAILY
     Dates: start: 20061101, end: 20090301

REACTIONS (6)
  - BLOOD GLUCOSE INCREASED [None]
  - CHOKING [None]
  - CONFUSIONAL STATE [None]
  - LETHARGY [None]
  - PRURITUS [None]
  - SCAB [None]
